FAERS Safety Report 8552976-9 (Version None)
Quarter: 2012Q3

REPORT INFORMATION
  Report Type: 
  Country: None (occurrence: None)
  Receive Date: 20120731
  Receipt Date: 20120723
  Transmission Date: 20120928
  Serious: Yes (Hospitalization)
  Sender: FDA-Public Use
  Company Number: US-ASTELLAS-2012US006329

PATIENT
  Sex: Male
  Weight: 67 kg

DRUGS (5)
  1. ZOMETA [Concomitant]
     Indication: PRODUCT USED FOR UNKNOWN INDICATION
     Dosage: 1 DF, MONTHLY
     Route: 042
  2. GEMCITABINE [Suspect]
     Indication: PANCREATIC CARCINOMA
     Dosage: 1000 MG/M2, WEEKLY
     Route: 042
     Dates: start: 20120708, end: 20120713
  3. TARCEVA [Suspect]
     Indication: PANCREATIC CARCINOMA
     Dosage: 100 MG, UID/QD
     Route: 048
     Dates: start: 20120629, end: 20120718
  4. ZOLOFT [Concomitant]
     Indication: DEPRESSION
     Dosage: 100 MG, UNKNOWN/D
     Route: 048
     Dates: start: 20120629
  5. COUMADIN [Concomitant]
     Indication: PULMONARY EMBOLISM
     Dosage: 3 MG, UNKNOWN/D
     Route: 048
     Dates: start: 20120601

REACTIONS (2)
  - INTERSTITIAL LUNG DISEASE [None]
  - LUNG DISORDER [None]
